FAERS Safety Report 4511630-0 (Version None)
Quarter: 2004Q4

REPORT INFORMATION
  Report Type: 
  Country: None (occurrence: None)
  Receive Date: 20041129
  Receipt Date: 20041020
  Transmission Date: 20050328
  Serious: Yes (Other)
  Sender: FDA-Public Use
  Company Number: US-BRISTOL-MYERS SQUIBB COMPANY-12738530

PATIENT
  Age: 25 Year
  Sex: Female
  Weight: 58 kg

DRUGS (3)
  1. ABILIFY [Suspect]
     Route: 048
     Dates: start: 20041019
  2. WELLBUTRIN [Concomitant]
  3. ATIVAN [Concomitant]

REACTIONS (2)
  - ATRIAL FIBRILLATION [None]
  - HEART RATE INCREASED [None]
